FAERS Safety Report 4791157-1 (Version None)
Quarter: 2005Q4

REPORT INFORMATION
  Report Type: 
  Country: None (occurrence: None)
  Receive Date: 20051005
  Receipt Date: 20050921
  Transmission Date: 20060501
  Serious: Yes (Other)
  Sender: FDA-Public Use
  Company Number: 217933

PATIENT
  Age: 20 Year
  Sex: Female

DRUGS (1)
  1. NUTROPIN AQ [Suspect]
     Indication: GROWTH HORMONE DEFICIENCY
     Dosage: 5 MG/ML, SUBCUTANEOUS
     Route: 058

REACTIONS (6)
  - CONDITION AGGRAVATED [None]
  - EYE HAEMORRHAGE [None]
  - FALL [None]
  - OPTIC NERVE DISORDER [None]
  - PITUITARY TUMOUR [None]
  - VISUAL FIELD DEFECT [None]
